FAERS Safety Report 7746218-1 (Version None)
Quarter: 2011Q3

REPORT INFORMATION
  Report Type: 
  Country: None (occurrence: None)
  Receive Date: 20110913
  Receipt Date: 20110201
  Transmission Date: 20111222
  Serious: Yes (Hospitalization, Other)
  Sender: FDA-Public Use
  Company Number: JP-JNJFOC-20101108149

PATIENT
  Sex: Female

DRUGS (5)
  1. UNKNOWN MEDICATION [Concomitant]
     Indication: PEPTIC ULCER
     Route: 065
  2. DOXORUBICIN HYDROCHLORIDE [Suspect]
     Indication: OVARIAN CANCER RECURRENT
     Dosage: CYCLE 3
     Route: 042
  3. DOXORUBICIN HYDROCHLORIDE [Suspect]
     Dosage: CYCLE 3
     Route: 042
     Dates: start: 20101111, end: 20101111
  4. DOXORUBICIN HYDROCHLORIDE [Suspect]
     Dosage: CYCLE 3
     Route: 042
  5. UNKNOWN MEDICATION [Concomitant]
     Indication: PROPHYLAXIS
     Route: 049

REACTIONS (4)
  - STOMATITIS [None]
  - SALIVARY HYPERSECRETION [None]
  - OROPHARYNGEAL PAIN [None]
  - NEUROPATHY PERIPHERAL [None]
